FAERS Safety Report 20690832 (Version 1)
Quarter: 2022Q2

REPORT INFORMATION
  Report Type: Spontaneous
  Country: FI (occurrence: FI)
  Receive Date: 20220408
  Receipt Date: 20220408
  Transmission Date: 20220721
  Serious: Yes (Other)
  Sender: FDA-Public Use
  Company Number: FI-PFIZER INC-202200319012

PATIENT
  Age: 39 Year
  Sex: Female

DRUGS (2)
  1. CITALOPRAM [Interacting]
     Active Substance: CITALOPRAM HYDROBROMIDE
     Indication: Product used for unknown indication
     Dosage: UNK
  2. DIFLUCAN [Interacting]
     Active Substance: FLUCONAZOLE
     Indication: Product used for unknown indication
     Dosage: 150 MILLIGRAM, TOTAL (150 MG, SINGLE)

REACTIONS (5)
  - Serotonin syndrome [Unknown]
  - Drug interaction [Unknown]
  - Confusional state [Unknown]
  - Dizziness [Unknown]
  - Headache [Unknown]
